FAERS Safety Report 4370115-5 (Version None)
Quarter: 2004Q2

REPORT INFORMATION
  Report Type: 
  Country: None (occurrence: None)
  Receive Date: 20040527
  Receipt Date: 20040512
  Transmission Date: 20050107
  Serious: Yes (Hospitalization)
  Sender: FDA-Public Use
  Company Number: K200400706

PATIENT
  Age: 73 Year
  Sex: Female

DRUGS (6)
  1. ALTACE [Suspect]
     Indication: HYPERTENSION
     Dosage: 5 MG, QD, ORAL
     Route: 048
  2. ACETYLSALICYLIC ACID, 100 MG [Suspect]
     Indication: CORONARY ARTERY DISEASE
     Dosage: 100 MG, QD, ORAL
     Route: 048
     Dates: start: 20000901, end: 20030728
  3. GLUCOPHAGE [Suspect]
     Indication: DIABETES MELLITUS
     Dosage: 1000 MG, QD, ORAL
     Route: 048
     Dates: start: 20010501, end: 20030723
  4. HUMINSULIN PROFIL III (INSULIN HUMAN INJECTION, ISOPHANE), INJECTION, [Suspect]
     Indication: DIABETES MELLITUS
     Dosage: 30 IU QD, SUBCUTAENOUS
     Route: 058
     Dates: start: 20020101, end: 20030723
  5. ACTONEL [Concomitant]
  6. RADEDROM (NITRAZEPAM) [Concomitant]

REACTIONS (7)
  - APATHY [None]
  - ARRHYTHMIA [None]
  - BLOOD PRESSURE INCREASED [None]
  - DISORIENTATION [None]
  - GASTRIC ULCER [None]
  - GASTROENTERITIS HELICOBACTER [None]
  - HYPOGLYCAEMIA [None]
